FAERS Safety Report 5939290-2 (Version None)
Quarter: 2008Q4

REPORT INFORMATION
  Report Type: 
  Country: None (occurrence: None)
  Receive Date: 20081103
  Receipt Date: 20081020
  Transmission Date: 20090506
  Serious: Yes (Hospitalization, Other)
  Sender: FDA-Public Use
  Company Number: US-ELI_LILLY_AND_COMPANY-US200810005341

PATIENT
  Age: 54 Year
  Sex: Female

DRUGS (1)
  1. OLANZAPINE [Suspect]
     Indication: SOMATIC DELUSION

REACTIONS (13)
  - ANOREXIA [None]
  - DERMATILLOMANIA [None]
  - EXCORIATION [None]
  - FEELING OF DESPAIR [None]
  - FORMICATION [None]
  - SCAR [None]
  - SKIN ULCER [None]
  - SLEEP DISORDER [None]
  - SOMATIC DELUSION [None]
  - SUICIDAL IDEATION [None]
  - THERMAL BURN [None]
  - WEIGHT DECREASED [None]
  - WEIGHT INCREASED [None]
